FAERS Safety Report 10273182 (Version 1)
Quarter: 2014Q2

REPORT INFORMATION
  Report Type: Spontaneous
  Country: GB (occurrence: None)
  Receive Date: 20140630
  Receipt Date: 20140630
  Transmission Date: 20141212
  Serious: Yes (Other)
  Sender: FDA-Public Use
  Company Number: 2014AMD00022

PATIENT
  Age: 30 Year
  Sex: Male

DRUGS (5)
  1. PYRIMETHAMINE [Suspect]
     Indication: EYE INFECTION TOXOPLASMAL
     Route: 048
  2. CLINDAMYCIN (CLINDAMYCIN) [Suspect]
     Indication: EYE INFECTION TOXOPLASMAL
     Route: 031
  3. SULPHADIAZINE [Suspect]
     Indication: EYE INFECTION TOXOPLASMAL
     Route: 048
  4. PREDNISOLONE (PREDNISOLONE) [Suspect]
     Indication: EYE INFECTION TOXOPLASMAL
     Route: 048
  5. FOLINIC ACID [Suspect]
     Indication: EYE INFECTION TOXOPLASMAL
     Route: 048

REACTIONS (3)
  - Lymphopenia [None]
  - Retinal artery occlusion [None]
  - Vitritis [None]
